FAERS Safety Report 11619488 (Version 1)
Quarter: 2015Q4

REPORT INFORMATION
  Report Type: Spontaneous
  Country: KR (occurrence: KR)
  Receive Date: 20151012
  Receipt Date: 20151012
  Transmission Date: 20160304
  Serious: Yes (Hospitalization)
  Sender: FDA-Public Use
  Company Number: KR-AKORN PHARMACEUTICALS-2015AKN00555

PATIENT
  Age: 34 Year
  Sex: Female

DRUGS (5)
  1. HYALURONIDASE [Suspect]
     Active Substance: HYALURONIDASE
     Indication: EPIDURAL ANAESTHESIA
     Dosage: 1500 U, ONCE
     Route: 037
  2. MIDAZOLAM [Concomitant]
     Active Substance: MIDAZOLAM\MIDAZOLAM HYDROCHLORIDE
  3. HYPERTONIC SALINE (10%) [Suspect]
     Active Substance: SODIUM CHLORIDE
     Indication: EPIDURAL ANAESTHESIA
     Dosage: 6 CC, ONCE
     Route: 037
  4. TRIAMCINOLONE ACETONIDE. [Suspect]
     Active Substance: TRIAMCINOLONE ACETONIDE
     Indication: EPIDURAL ANAESTHESIA
     Dosage: 40 MG, ONCE
     Route: 037
  5. LIDOCAINE (1%) [Suspect]
     Active Substance: LIDOCAINE
     Indication: EPIDURAL ANAESTHESIA
     Dosage: 16 MG, ONCE
     Route: 037

REACTIONS (8)
  - Stress cardiomyopathy [Recovered/Resolved]
  - Headache [None]
  - Hypoaesthesia [None]
  - Cardiac failure [None]
  - Pulmonary oedema [None]
  - Paraesthesia [None]
  - Respiratory failure [Recovered/Resolved]
  - Incorrect route of drug administration [Recovered/Resolved]
